FAERS Safety Report 8111649-7 (Version None)
Quarter: 2012Q1

REPORT INFORMATION
  Report Type: 
  Country: None (occurrence: None)
  Receive Date: 20120203
  Receipt Date: 20120130
  Transmission Date: 20120608
  Serious: Yes (Other)
  Sender: FDA-Public Use
  Company Number: US-PFIZER INC-2011237313

PATIENT
  Sex: Female
  Weight: 50.3 kg

DRUGS (5)
  1. PROGESTERONE [Concomitant]
     Dosage: UNK
  2. OMEPRAZOLE [Concomitant]
     Dosage: UNK
  3. PREMARIN [Suspect]
     Indication: MENOPAUSE
     Dosage: UNK
     Route: 067
     Dates: start: 20010101
  4. VYTORIN [Concomitant]
     Dosage: UNK
  5. AMLODIPINE [Concomitant]
     Dosage: UNK

REACTIONS (5)
  - VAGINAL INFECTION [None]
  - ANGER [None]
  - URINARY TRACT INFECTION [None]
  - ANXIETY [None]
  - CIRCUMSTANCE OR INFORMATION CAPABLE OF LEADING TO MEDICATION ERROR [None]
